FAERS Safety Report 18114988 (Version 10)
Quarter: 2021Q2

REPORT INFORMATION
  Report Type: Spontaneous
  Country: GE (occurrence: GE)
  Receive Date: 20200805
  Receipt Date: 20210421
  Transmission Date: 20210717
  Serious: Yes (Death, Life-Threatening)
  Sender: FDA-Public Use
  Company Number: GE-CELGENEUS-GEO-20200800382

PATIENT
  Age: 59 Year
  Sex: Male
  Weight: 67 kg

DRUGS (5)
  1. CARBOPLATIN. [Suspect]
     Active Substance: CARBOPLATIN
     Dosage: 519.7  MILLIGRAM
     Route: 041
     Dates: start: 20200707, end: 20200707
  2. SERPLULIMAB. [Suspect]
     Active Substance: SERPLULIMAB
     Indication: LUNG CARCINOMA CELL TYPE UNSPECIFIED STAGE IV
     Dosage: 292.5 MILLIGRAM
     Route: 041
     Dates: start: 20200617, end: 20200707
  3. ABRAXANE [Suspect]
     Active Substance: PACLITAXEL
     Dosage: 178 MILLIGRAM
     Route: 041
     Dates: start: 20200707, end: 20200714
  4. CARBOPLATIN. [Suspect]
     Active Substance: CARBOPLATIN
     Indication: LUNG CARCINOMA CELL TYPE UNSPECIFIED STAGE IV
     Dosage: 482.39 MILLIGRAM
     Route: 041
     Dates: start: 20200617, end: 20200617
  5. ABRAXANE [Suspect]
     Active Substance: PACLITAXEL
     Indication: LUNG CARCINOMA CELL TYPE UNSPECIFIED STAGE IV
     Dosage: 176 MILLIGRAM
     Route: 041
     Dates: start: 20200617, end: 20200624

REACTIONS (2)
  - Pulmonary haemorrhage [Fatal]
  - Tumour lysis syndrome [Not Recovered/Not Resolved]

NARRATIVE: CASE EVENT DATE: 2020
